FAERS Safety Report 4417158-0 (Version None)
Quarter: 2004Q2

REPORT INFORMATION
  Report Type: 
  Country: None (occurrence: None)
  Receive Date: 20040629
  Receipt Date: 20040401
  Transmission Date: 20050107
  Serious: No
  Sender: FDA-Public Use
  Company Number: 2004UW06723

PATIENT
  Age: 50 Year
  Sex: Male

DRUGS (2)
  1. ATACAND [Suspect]
  2. HYDROCHLOROTHIAZIDE [Suspect]

REACTIONS (4)
  - BLOOD CREATININE INCREASED [None]
  - FATIGUE [None]
  - PYREXIA [None]
  - RENAL FAILURE [None]
